FAERS Safety Report 9057416 (Version 1)
Quarter: 2013Q1

REPORT INFORMATION
  Report Type: Spontaneous
  Country: US (occurrence: US)
  Receive Date: 20130204
  Receipt Date: 20130204
  Transmission Date: 20140127
  Serious: No
  Sender: FDA-Public Use
  Company Number: US-009507513-1302USA001141

PATIENT
  Sex: Female

DRUGS (1)
  1. MIRALAX [Suspect]
     Indication: BOWEL PREPARATION
     Dosage: 238 G, ONCE
     Route: 048
     Dates: start: 20121127

REACTIONS (3)
  - Dizziness [Unknown]
  - Overdose [Unknown]
  - Off label use [Unknown]
